FAERS Safety Report 7429055-7 (Version None)
Quarter: 2011Q2

REPORT INFORMATION
  Report Type: 
  Country: None (occurrence: None)
  Receive Date: 20110421
  Receipt Date: 20110414
  Transmission Date: 20111010
  Serious: Yes (Other)
  Sender: FDA-Public Use
  Company Number: US-RB-024445-11

PATIENT
  Age: 23 Year
  Sex: Female

DRUGS (2)
  1. MUCINEX DM [Suspect]
     Indication: RESPIRATORY TRACT CONGESTION
     Route: 048
  2. BUSPAR [Concomitant]
     Indication: ANXIETY

REACTIONS (7)
  - FEELING HOT [None]
  - CONVULSION [None]
  - BLINDNESS [None]
  - FEELING ABNORMAL [None]
  - MUSCLE SPASMS [None]
  - ANXIETY [None]
  - LOSS OF CONSCIOUSNESS [None]
